FAERS Safety Report 10669318 (Version 2)
Quarter: 2014Q4

REPORT INFORMATION
  Report Type: Spontaneous
  Country: US (occurrence: US)
  Receive Date: 20141222
  Receipt Date: 20141222
  Transmission Date: 20150529
  Serious: Yes (Hospitalization, Other)
  Sender: FDA-Public Use
  Company Number: US-ELI_LILLY_AND_COMPANY-US201410012439

PATIENT
  Age: 41 Year
  Sex: Female
  Weight: 85.71 kg

DRUGS (2)
  1. CYMBALTA [Suspect]
     Active Substance: DULOXETINE HYDROCHLORIDE
     Indication: DEPRESSION
  2. CYMBALTA [Suspect]
     Active Substance: DULOXETINE HYDROCHLORIDE
     Indication: NEUROPATHY PERIPHERAL
     Dosage: 30MG, QD
     Route: 065
     Dates: start: 20080412, end: 20080416

REACTIONS (26)
  - Insomnia [Unknown]
  - Restlessness [Unknown]
  - Drug withdrawal syndrome [Unknown]
  - Off label use [Recovered/Resolved]
  - Chest pain [Unknown]
  - Hypertension [Unknown]
  - Muscular weakness [Unknown]
  - Tremor [Unknown]
  - Pain [Unknown]
  - Hypertension [Unknown]
  - Nervousness [Unknown]
  - Abdominal pain upper [Unknown]
  - Weight decreased [Unknown]
  - Drug withdrawal convulsions [Unknown]
  - Irritability [Unknown]
  - Delusion [Unknown]
  - Headache [Unknown]
  - Agitation [Unknown]
  - Heart rate increased [Unknown]
  - Mood altered [Unknown]
  - Anxiety [Unknown]
  - Paranoia [Unknown]
  - Hypotension [Unknown]
  - Nausea [Unknown]
  - Chills [Unknown]
  - Decreased appetite [Unknown]

NARRATIVE: CASE EVENT DATE: 200804
